FAERS Safety Report 7236317-5 (Version None)
Quarter: 2011Q1

REPORT INFORMATION
  Report Type: 
  Country: None (occurrence: None)
  Receive Date: 20110120
  Receipt Date: 20110119
  Transmission Date: 20110831
  Serious: Yes (Life-Threatening)
  Sender: FDA-Public Use
  Company Number: MX-B.I. PHARMACEUTICALS,INC./RIDGEFIELD-2011-MX-00007MX

PATIENT
  Age: 70 Year
  Sex: Female
  Weight: 68 kg

DRUGS (4)
  1. METFORMIN HCL [Concomitant]
     Indication: TYPE 2 DIABETES MELLITUS
     Dosage: 2550 MG
     Route: 048
  2. BEZAFIBRATO [Concomitant]
     Indication: DYSLIPIDAEMIA
     Route: 048
  3. DABIGATRAN ETEXILATE [Suspect]
     Indication: THROMBOSIS PROPHYLAXIS
     Dosage: 220 MG
     Route: 048
     Dates: start: 20100701, end: 20100701
  4. ATENOLOL [Concomitant]
     Indication: HYPERTENSION
     Dosage: 25 MG
     Route: 048

REACTIONS (1)
  - PULMONARY EMBOLISM [None]
